FAERS Safety Report 9280891 (Version 1)
Quarter: 2013Q2

REPORT INFORMATION
  Report Type: Spontaneous
  Country: US (occurrence: US)
  Receive Date: 20130509
  Receipt Date: 20130509
  Transmission Date: 20140414
  Serious: No
  Sender: FDA-Public Use
  Company Number: US-009507513-1305USA000034

PATIENT
  Age: 21 Year
  Sex: Female
  Weight: 58.96 kg

DRUGS (3)
  1. NUVARING [Suspect]
     Indication: CONTRACEPTION
     Dosage: 1 RING FOR 3 WEEKS
     Route: 067
     Dates: start: 201211, end: 201211
  2. NUVARING [Suspect]
     Dosage: 1 RING FOR 3 WEEKS
     Dates: start: 201212
  3. NUVARING [Suspect]
     Dosage: 1 RING FOR 3 WEEKS
     Dates: start: 20120407

REACTIONS (3)
  - Fungal infection [Recovered/Resolved]
  - Fungal infection [Recovered/Resolved]
  - Incorrect drug administration duration [Unknown]
